FAERS Safety Report 9365124 (Version 1)
Quarter: 2013Q2

REPORT INFORMATION
  Report Type: Spontaneous
  Country: IT (occurrence: IT)
  Receive Date: 20130624
  Receipt Date: 20130624
  Transmission Date: 20140414
  Serious: Yes (Hospitalization)
  Sender: FDA-Public Use
  Company Number: PHHY2013IT063049

PATIENT
  Sex: Male

DRUGS (8)
  1. IRINOTECAN [Suspect]
     Indication: COLON CANCER
     Dosage: 180 MG/M2, CYCLIC
     Route: 042
     Dates: start: 20121220, end: 20130426
  2. IRINOTECAN [Suspect]
     Indication: COLON CANCER
  3. ONDANSETRON [Suspect]
     Indication: PREMEDICATION
     Dosage: 8 MG, UNK
     Route: 042
     Dates: start: 20121220, end: 20130426
  4. AVASTIN [Suspect]
     Indication: COLON CANCER
     Dosage: 400 MG, CYCLIC
     Route: 042
     Dates: start: 20130222, end: 20130426
  5. AVASTIN [Suspect]
     Indication: COLON CANCER
     Dosage: 35 MG, CYCLIC
     Route: 042
     Dates: start: 20130222, end: 20130426
  6. ZANTAC [Concomitant]
     Indication: PREMEDICATION
     Route: 042
     Dates: start: 20121220, end: 20130426
  7. XELODA [Concomitant]
     Indication: COLON CANCER
     Dosage: 500 MG, UNK
     Route: 048
     Dates: start: 20121220, end: 20130426
  8. DEXAMETHASONE [Concomitant]
     Indication: PREMEDICATION
     Route: 042
     Dates: start: 20121220, end: 20130426

REACTIONS (4)
  - Hypertension [Recovered/Resolved]
  - Subileus [Recovered/Resolved]
  - Vomiting [Recovered/Resolved]
  - Constipation [Recovered/Resolved]
